FAERS Safety Report 9701493 (Version 3)
Quarter: 2013Q4

REPORT INFORMATION
  Report Type: Spontaneous
  Country: JP (occurrence: JP)
  Receive Date: 20131121
  Receipt Date: 20131220
  Transmission Date: 20140711
  Serious: Yes (Death, Hospitalization)
  Sender: FDA-Public Use
  Company Number: JP-BAXTER-2013BAX045681

PATIENT
  Age: 68 Year
  Sex: Female

DRUGS (2)
  1. ENDOXAN 1G [Suspect]
     Indication: BREAST CANCER
     Route: 041
     Dates: start: 20130927, end: 20131002
  2. TAXOTERE [Suspect]
     Indication: BREAST CANCER
     Route: 041
     Dates: start: 20130927, end: 20130927

REACTIONS (2)
  - Pulmonary haemorrhage [Fatal]
  - Neutrophil count decreased [Not Recovered/Not Resolved]
